FAERS Safety Report 4477281-1 (Version None)
Quarter: 2004Q4

REPORT INFORMATION
  Report Type: 
  Country: None (occurrence: None)
  Receive Date: 20041018
  Receipt Date: 20041012
  Transmission Date: 20050328
  Serious: Yes (Disabling)
  Sender: FDA-Public Use
  Company Number: US-MERCK-0410USA01770

PATIENT
  Age: 53 Year
  Sex: Female

DRUGS (4)
  1. GLUCOPHAGE [Concomitant]
     Route: 065
  2. PRIMIDONE [Concomitant]
     Route: 065
  3. VIOXX [Suspect]
     Indication: ARTHRITIS
     Route: 048
     Dates: start: 20010101, end: 20040930
  4. DIOVAN [Concomitant]
     Route: 065

REACTIONS (5)
  - AMNESIA [None]
  - ARTERIAL DISORDER [None]
  - HEADACHE [None]
  - TRANSIENT ISCHAEMIC ATTACK [None]
  - TREMOR [None]
